FAERS Safety Report 13998834 (Version 1)
Quarter: 2017Q3

REPORT INFORMATION
  Report Type: Spontaneous
  Country: US (occurrence: None)
  Receive Date: 20170922
  Receipt Date: 20170922
  Transmission Date: 20171128
  Serious: Yes (Hospitalization)
  Sender: FDA-Public Use
  Company Number: None

PATIENT
  Age: 61 Year
  Sex: Male
  Weight: 110.09 kg

DRUGS (1)
  1. FUROSEMIDE. [Suspect]
     Active Substance: FUROSEMIDE
     Indication: CARDIAC FAILURE CONGESTIVE
     Route: 048
     Dates: start: 20150723, end: 20170525

REACTIONS (5)
  - Fluid overload [None]
  - Hypophagia [None]
  - Cardiac failure [None]
  - Dehydration [None]
  - Peripheral swelling [None]

NARRATIVE: CASE EVENT DATE: 20170530
